FAERS Safety Report 9492820 (Version 1)
Quarter: 2013Q3

REPORT INFORMATION
  Report Type: Spontaneous
  Country: JP (occurrence: JP)
  Receive Date: 20130830
  Receipt Date: 20130830
  Transmission Date: 20140515
  Serious: Yes (Hospitalization)
  Sender: FDA-Public Use
  Company Number: JP-SANOFI-AVENTIS-2013SA083978

PATIENT
  Age: 75 Year
  Sex: Female
  Weight: 51.7 kg

DRUGS (4)
  1. DIGOXIN [Suspect]
     Indication: MITRAL VALVE PROLAPSE
     Route: 065
  2. FUROSEMIDE [Suspect]
     Indication: MITRAL VALVE PROLAPSE
     Dosage: 20-40 MG
     Route: 065
  3. CAPTOPRIL [Suspect]
     Indication: MITRAL VALVE PROLAPSE
     Route: 065
  4. ASPIRIN [Concomitant]

REACTIONS (3)
  - Ventricular tachycardia [Unknown]
  - Ventricular extrasystoles [Unknown]
  - Hypotension [Recovering/Resolving]
